FAERS Safety Report 25076429 (Version 1)
Quarter: 2025Q1

REPORT INFORMATION
  Report Type: Spontaneous
  Country: CN (occurrence: CN)
  Receive Date: 20250313
  Receipt Date: 20250313
  Transmission Date: 20250409
  Serious: Yes (Other)
  Sender: BEIGENE
  Company Number: CN-BEIGENE-BGN-2025-003832

PATIENT
  Age: 72 Year

DRUGS (16)
  1. TISLELIZUMAB [Suspect]
     Active Substance: TISLELIZUMAB
     Indication: Lung adenocarcinoma
  2. TISLELIZUMAB [Suspect]
     Active Substance: TISLELIZUMAB
     Route: 041
  3. TISLELIZUMAB [Suspect]
     Active Substance: TISLELIZUMAB
     Route: 041
  4. TISLELIZUMAB [Suspect]
     Active Substance: TISLELIZUMAB
  5. CISPLATIN [Suspect]
     Active Substance: CISPLATIN
     Indication: Lung adenocarcinoma
     Dosage: 20 MILLIGRAM, Q3WK, D1
  6. CISPLATIN [Suspect]
     Active Substance: CISPLATIN
     Dosage: 20 MILLIGRAM, Q3WK, D1
  7. CISPLATIN [Suspect]
     Active Substance: CISPLATIN
     Dosage: 20 MILLIGRAM, Q3WK, D1
     Route: 041
  8. CISPLATIN [Suspect]
     Active Substance: CISPLATIN
     Dosage: 20 MILLIGRAM, Q3WK, D1
     Route: 041
  9. CISPLATIN [Suspect]
     Active Substance: CISPLATIN
     Dosage: 30 MILLIGRAM, Q3WK, D2, D3
  10. CISPLATIN [Suspect]
     Active Substance: CISPLATIN
     Dosage: 30 MILLIGRAM, Q3WK, D2, D3
  11. CISPLATIN [Suspect]
     Active Substance: CISPLATIN
     Dosage: 30 MILLIGRAM, Q3WK, D2, D3
     Route: 041
  12. CISPLATIN [Suspect]
     Active Substance: CISPLATIN
     Dosage: 30 MILLIGRAM, Q3WK, D2, D3
     Route: 041
  13. ETOPOSIDE [Suspect]
     Active Substance: ETOPOSIDE
     Indication: Lung adenocarcinoma
     Dosage: 0.15 GRAM, D1
  14. ETOPOSIDE [Suspect]
     Active Substance: ETOPOSIDE
     Dosage: 0.15 GRAM, D1
     Route: 041
  15. ETOPOSIDE [Suspect]
     Active Substance: ETOPOSIDE
     Dosage: 0.1 GRAM, Q3WK, D2, D3
  16. ETOPOSIDE [Suspect]
     Active Substance: ETOPOSIDE
     Dosage: 0.1 GRAM, Q3WK, D2, D3
     Route: 041

REACTIONS (1)
  - Myelosuppression [Recovering/Resolving]
